FAERS Safety Report 18110464 (Version 1)
Quarter: 2020Q3

REPORT INFORMATION
  Report Type: Spontaneous
  Country: US (occurrence: US)
  Receive Date: 20200804
  Receipt Date: 20200804
  Transmission Date: 20201103
  Serious: No
  Sender: FDA-Public Use
  Company Number: US-ASTRAZENECA-2020SE93545

PATIENT
  Age: 11810 Day
  Sex: Female

DRUGS (1)
  1. FASENRA [Suspect]
     Active Substance: BENRALIZUMAB
     Indication: ASTHMA
     Dosage: 30 MG/ML, EVERY 28 DAYS FOR FIRST 3 DOSES AND EVERY 56 DAYS THEREAFTER
     Route: 058
     Dates: start: 20200523

REACTIONS (4)
  - Wrong technique in device usage process [Unknown]
  - Injection site extravasation [Not Recovered/Not Resolved]
  - Device issue [Unknown]
  - Incorrect dose administered [Unknown]

NARRATIVE: CASE EVENT DATE: 20200721
